FAERS Safety Report 8464686-7 (Version None)
Quarter: 2012Q2

REPORT INFORMATION
  Report Type: 
  Country: None (occurrence: None)
  Receive Date: 20120620
  Receipt Date: 20120620
  Transmission Date: 20120825
  Serious: No
  Sender: FDA-Public Use
  Company Number: None

PATIENT
  Age: 53 Year
  Sex: Female
  Weight: 98.4306 kg

DRUGS (1)
  1. ONGLYZA [Suspect]
     Indication: DIABETES MELLITUS
     Dosage: 5 DAILEY
     Dates: start: 20120501, end: 20120614

REACTIONS (9)
  - GAIT DISTURBANCE [None]
  - BLADDER PAIN [None]
  - PAIN IN EXTREMITY [None]
  - STOMATITIS [None]
  - ANXIETY [None]
  - PALPITATIONS [None]
  - CHROMATURIA [None]
  - PAIN [None]
  - NEURALGIA [None]
